FAERS Safety Report 20126538 (Version 1)
Quarter: 2021Q4

REPORT INFORMATION
  Report Type: Spontaneous
  Country: US (occurrence: US)
  Receive Date: 20211129
  Receipt Date: 20211129
  Transmission Date: 20220304
  Serious: No
  Sender: FDA-Public Use
  Company Number: US-GILEAD-2021-0552898

PATIENT
  Sex: Female
  Weight: 51.9 kg

DRUGS (2)
  1. LENACAPAVIR [Suspect]
     Active Substance: LENACAPAVIR
     Indication: HIV infection
     Dosage: 600 MG
     Route: 048
     Dates: start: 20200831, end: 20200922
  2. LENACAPAVIR [Suspect]
     Active Substance: LENACAPAVIR
     Dosage: 900 MG
     Route: 058
     Dates: start: 20200929, end: 20210330

REACTIONS (1)
  - Maternal exposure during pregnancy [Not Recovered/Not Resolved]

NARRATIVE: CASE EVENT DATE: 20210901
